FAERS Safety Report 16921551 (Version 1)
Quarter: 2019Q4

REPORT INFORMATION
  Report Type: Report from Study
  Country: DE (occurrence: DE)
  Receive Date: 20191015
  Receipt Date: 20191015
  Transmission Date: 20200122
  Serious: Yes (Other)
  Sender: FDA-Public Use
  Company Number: PHHY2018DE038267

PATIENT
  Sex: Male

DRUGS (1)
  1. SOMATROPIN. [Suspect]
     Active Substance: SOMATROPIN
     Indication: GROWTH HORMONE DEFICIENCY
     Dosage: 0.022 OT, UNK (10 MG/1.5 ML SOLUTION FOR INJECTION)
     Route: 058
     Dates: start: 20120423

REACTIONS (4)
  - Brain malformation [Unknown]
  - Seizure [Not Recovered/Not Resolved]
  - Septo-optic dysplasia [Unknown]
  - Diabetes insipidus [Not Recovered/Not Resolved]

NARRATIVE: CASE EVENT DATE: 20171231
